FAERS Safety Report 18730335 (Version 1)
Quarter: 2021Q1

REPORT INFORMATION
  Report Type: Spontaneous
  Country: US (occurrence: US)
  Receive Date: 20210112
  Receipt Date: 20210112
  Transmission Date: 20210419
  Serious: No
  Sender: FDA-Public Use
  Company Number: US-INTRA-CELLULAR THERAPIES, INC.-2020ICT00182

PATIENT

DRUGS (4)
  1. ^HYDROXYTINE^ [Concomitant]
  2. CAPLYTA [Suspect]
     Active Substance: LUMATEPERONE
     Indication: SCHIZOPHRENIA
     Dosage: 42 MG, 1X/DAY
     Route: 048
     Dates: start: 202007
  3. LAMICTAL [Concomitant]
     Active Substance: LAMOTRIGINE
  4. ^DYLOXETINE^ [Concomitant]

REACTIONS (3)
  - Headache [Unknown]
  - Hypertension [Unknown]
  - Palpitations [Unknown]

NARRATIVE: CASE EVENT DATE: 202010
